FAERS Safety Report 11860341 (Version 1)
Quarter: 2015Q4

REPORT INFORMATION
  Report Type: Other
  Country: US (occurrence: US)
  Receive Date: 20151222
  Receipt Date: 20151222
  Transmission Date: 20160305
  Serious: Yes (Hospitalization, Other)
  Sender: FDA-Public Use
  Company Number: US-MEDTRONIC-1045782

PATIENT
  Age: 69 Year
  Sex: Female

DRUGS (1)
  1. BACLOFEN. [Suspect]
     Active Substance: BACLOFEN
     Indication: MUSCLE SPASTICITY
     Route: 048

REACTIONS (6)
  - Blood creatine phosphokinase increased [Recovered/Resolved with Sequelae]
  - Drug withdrawal syndrome [Recovered/Resolved with Sequelae]
  - Muscle spasms [Recovered/Resolved with Sequelae]
  - Rhabdomyolysis [Recovered/Resolved with Sequelae]
  - Muscle twitching [Recovered/Resolved with Sequelae]
  - Chronic obstructive pulmonary disease [Recovered/Resolved with Sequelae]
